FAERS Safety Report 10149114 (Version 1)
Quarter: 2014Q2

REPORT INFORMATION
  Report Type: Spontaneous
  Country: US (occurrence: None)
  Receive Date: 20140501
  Receipt Date: 20140501
  Transmission Date: 20141212
  Serious: Yes (Hospitalization)
  Sender: FDA-Public Use
  Company Number: None

PATIENT
  Age: 78 Year
  Sex: Male

DRUGS (5)
  1. AMPICILLIN/SULBACTAM [Suspect]
     Indication: INFECTION
     Route: 042
     Dates: start: 20130614, end: 20130614
  2. ACETAMINOPHEN [Concomitant]
  3. ALLOPURINOL [Concomitant]
  4. ENOXAPARIN [Concomitant]
  5. LISINOPRIL [Concomitant]

REACTIONS (3)
  - Abdominal pain [None]
  - Nausea [None]
  - Loss of consciousness [None]
